FAERS Safety Report 9603182 (Version 1)
Quarter: 2013Q4

REPORT INFORMATION
  Report Type: Report from Study
  Country: US (occurrence: US)
  Receive Date: 20131007
  Receipt Date: 20131007
  Transmission Date: 20140711
  Serious: Yes (Hospitalization)
  Sender: FDA-Public Use
  Company Number: US-ABBVIE-13P-163-1152475-00

PATIENT
  Age: 94 Year
  Sex: Female
  Weight: 54.93 kg

DRUGS (13)
  1. HUMIRA [Suspect]
     Indication: CROHN^S DISEASE
     Dosage: 1 TIME STARTER DOSE
     Dates: start: 20130913
  2. PREDNISONE [Concomitant]
     Indication: CROHN^S DISEASE
  3. CALCIUM [Concomitant]
     Indication: VITAMIN SUPPLEMENTATION
  4. VITAMIN D [Concomitant]
     Indication: VITAMIN SUPPLEMENTATION
  5. RESTASIS [Concomitant]
     Indication: PRODUCT USED FOR UNKNOWN INDICATION
  6. MULTIVITAMIN [Concomitant]
     Indication: VITAMIN SUPPLEMENTATION
  7. CO Q 10 [Concomitant]
     Indication: VITAMIN SUPPLEMENTATION
  8. FISH OIL [Concomitant]
     Indication: VITAMIN SUPPLEMENTATION
  9. OMEGA 3 [Concomitant]
     Indication: VITAMIN SUPPLEMENTATION
  10. B COMPLEX [Concomitant]
     Indication: VITAMIN SUPPLEMENTATION
  11. NAPROXEN [Concomitant]
     Indication: PRODUCT USED FOR UNKNOWN INDICATION
  12. METRONIDAZOLE [Concomitant]
     Indication: PRODUCT USED FOR UNKNOWN INDICATION
  13. PENTASA [Concomitant]
     Indication: CROHN^S DISEASE

REACTIONS (2)
  - Small intestinal obstruction [Recovering/Resolving]
  - Abdominal pain [Not Recovered/Not Resolved]
